FAERS Safety Report 5987253-3 (Version None)
Quarter: 2008Q4

REPORT INFORMATION
  Report Type: 
  Country: None (occurrence: None)
  Receive Date: 20081209
  Receipt Date: 20081202
  Transmission Date: 20090506
  Serious: Yes (Hospitalization, Other)
  Sender: FDA-Public Use
  Company Number: US-AMGEN-QUU321721

PATIENT
  Sex: Male

DRUGS (10)
  1. EPOGEN [Suspect]
     Indication: RENAL FAILURE CHRONIC
     Route: 058
     Dates: start: 19970101
  2. VIAGRA [Concomitant]
  3. LISINOPRIL [Concomitant]
  4. COREG [Concomitant]
  5. LEVOTHYROXINE SODIUM [Concomitant]
  6. IRON [Concomitant]
     Route: 042
  7. VITAMIN B-12 [Concomitant]
  8. PLAVIX [Concomitant]
  9. ASPIRIN [Concomitant]
  10. LIPITOR [Concomitant]

REACTIONS (12)
  - BLOOD PROLACTIN INCREASED [None]
  - CARDIAC FAILURE CONGESTIVE [None]
  - CARDIOMYOPATHY [None]
  - CEREBROVASCULAR ACCIDENT [None]
  - CORONARY ARTERIAL STENT INSERTION [None]
  - DEEP VEIN THROMBOSIS [None]
  - DIABETIC NEUROPATHY [None]
  - EYE DISORDER [None]
  - IMPLANTABLE DEFIBRILLATOR INSERTION [None]
  - MYOCARDIAL INFARCTION [None]
  - RENAL TRANSPLANT [None]
  - TRANSPLANT FAILURE [None]
